FAERS Safety Report 9325486 (Version 1)
Quarter: 2013Q2

REPORT INFORMATION
  Report Type: Spontaneous
  Country: US (occurrence: None)
  Receive Date: 20130531
  Receipt Date: 20130531
  Transmission Date: 20140414
  Serious: No
  Sender: FDA-Public Use
  Company Number: None

PATIENT
  Age: 29 Year
  Sex: Female

DRUGS (1)
  1. TECFIDERA [Suspect]
     Indication: MULTIPLE SCLEROSIS
     Dosage: 120 MG X 7DAYS, THEN 240MG
     Route: 048
     Dates: start: 20130524, end: 20130524

REACTIONS (3)
  - Hot flush [None]
  - Palpitations [None]
  - Heart rate increased [None]
